FAERS Safety Report 11345922 (Version 1)
Quarter: 2015Q3

REPORT INFORMATION
  Report Type: Spontaneous
  Country: US (occurrence: US)
  Receive Date: 20150803
  Receipt Date: 20150803
  Transmission Date: 20151125
  Serious: No
  Sender: FDA-Public Use
  Company Number: US-ELI_LILLY_AND_COMPANY-US200909001833

PATIENT
  Age: 13 Year
  Sex: Female

DRUGS (2)
  1. STRATTERA [Suspect]
     Active Substance: ATOMOXETINE HYDROCHLORIDE
     Indication: INSOMNIA
     Dosage: UNK, EACH MORNING
     Route: 065
     Dates: start: 2008
  2. STRATTERA [Suspect]
     Active Substance: ATOMOXETINE HYDROCHLORIDE
     Dosage: 25 MG, EACH EVENING
     Route: 065

REACTIONS (7)
  - Insomnia [Not Recovered/Not Resolved]
  - Drug ineffective [Not Recovered/Not Resolved]
  - Abnormal behaviour [Unknown]
  - Fatigue [Recovered/Resolved]
  - Irritability [Not Recovered/Not Resolved]
  - Somnolence [Recovered/Resolved]
  - Restlessness [Not Recovered/Not Resolved]

NARRATIVE: CASE EVENT DATE: 2008
